FAERS Safety Report 10216657 (Version 1)
Quarter: 2014Q2

REPORT INFORMATION
  Report Type: Spontaneous
  Country: US (occurrence: US)
  Receive Date: 20140604
  Receipt Date: 20140604
  Transmission Date: 20141212
  Serious: No
  Sender: FDA-Public Use
  Company Number: US-PFIZER INC-2014151455

PATIENT
  Age: 41 Year
  Sex: Male
  Weight: 97.51 kg

DRUGS (5)
  1. XELJANZ [Suspect]
     Dosage: 5 MG, 2X/DAY
     Route: 048
  2. LEVOTHYROXIN [Concomitant]
     Dosage: 300 UG, UNK
  3. PREDNISONE [Concomitant]
     Dosage: 1 MG, UNK
  4. PILOCARPINE [Concomitant]
     Dosage: 5 MG, UNK
  5. NAPRELAN [Concomitant]
     Dosage: 375 MG, UNK

REACTIONS (1)
  - Infection [Unknown]
